FAERS Safety Report 9644184 (Version 4)
Quarter: 2014Q2

REPORT INFORMATION
  Report Type: Spontaneous
  Country: FR (occurrence: FR)
  Receive Date: 20131024
  Receipt Date: 20140417
  Transmission Date: 20141212
  Serious: Yes (Disabling, Other)
  Sender: FDA-Public Use
  Company Number: FR-ROCHE-1252780

PATIENT
  Age: 62 Year
  Sex: Female
  Weight: 55 kg

DRUGS (4)
  1. ZELBORAF [Suspect]
     Indication: METASTATIC MALIGNANT MELANOMA
     Route: 048
     Dates: start: 20130714, end: 20130722
  2. ZELBORAF [Suspect]
     Route: 048
     Dates: start: 20130805, end: 20130807
  3. ZELBORAF [Suspect]
     Route: 048
     Dates: start: 20130809, end: 20130810
  4. AERIUS [Concomitant]
     Dosage: 1 TABLET 30 MINUTES BEFORE EACH INTAKE OF VEMURAFENIB.
     Route: 065

REACTIONS (6)
  - Rash [Recovered/Resolved]
  - Erythema [Recovered/Resolved]
  - Burning sensation [Recovered/Resolved]
  - Oedema [Recovered/Resolved]
  - Hyperkeratosis [Not Recovered/Not Resolved]
  - Skin lesion [Recovered/Resolved]
